FAERS Safety Report 9927747 (Version 1)
Quarter: 2014Q1

REPORT INFORMATION
  Report Type: Report from Study
  Country: US (occurrence: US)
  Receive Date: 20140227
  Receipt Date: 20140227
  Transmission Date: 20141002
  Serious: Yes (Other)
  Sender: FDA-Public Use
  Company Number: US-ROCHE-1350728

PATIENT
  Sex: Male

DRUGS (1)
  1. AVASTIN [Suspect]
     Indication: AGE-RELATED MACULAR DEGENERATION
     Route: 065

REACTIONS (6)
  - Eye pruritus [Unknown]
  - Retinal detachment [Unknown]
  - Visual acuity reduced [Unknown]
  - Visual impairment [Unknown]
  - Off label use [Unknown]
  - Drug ineffective [Unknown]
